FAERS Safety Report 7539678-2 (Version None)
Quarter: 2011Q2

REPORT INFORMATION
  Report Type: 
  Country: None (occurrence: None)
  Receive Date: 20110610
  Receipt Date: 20110531
  Transmission Date: 20111010
  Serious: Yes (Other)
  Sender: FDA-Public Use
  Company Number: FR-EISAI INC-E3810-04721-SPO-FR

PATIENT
  Age: 39 Year
  Sex: Male

DRUGS (2)
  1. LATANOPROST [Concomitant]
  2. RABEPRAZOLE SODIUM [Suspect]
     Indication: GASTROOESOPHAGEAL REFLUX DISEASE
     Route: 048

REACTIONS (2)
  - VISUAL IMPAIRMENT [None]
  - EYE PAIN [None]
